FAERS Safety Report 5496080-5 (Version None)
Quarter: 2007Q4

REPORT INFORMATION
  Report Type: 
  Country: None (occurrence: None)
  Receive Date: 20071025
  Receipt Date: 20070227
  Transmission Date: 20080405
  Serious: Yes (Life-Threatening, Disabling)
  Sender: FDA-Public Use
  Company Number: A0636514A

PATIENT
  Age: 60 Year
  Sex: Female

DRUGS (5)
  1. ADVAIR DISKUS 100/50 [Suspect]
     Dosage: 1PUFF PER DAY
     Route: 055
     Dates: start: 20070119, end: 20070120
  2. ALTACE [Concomitant]
  3. METFORMIN [Concomitant]
  4. THYROID TAB [Concomitant]
  5. CEPHALEXIN [Concomitant]

REACTIONS (6)
  - DIZZINESS [None]
  - DYSPNOEA [None]
  - HEADACHE [None]
  - HYPERSENSITIVITY [None]
  - PRURITUS [None]
  - RASH [None]
